FAERS Safety Report 7982283-4 (Version None)
Quarter: 2011Q4

REPORT INFORMATION
  Report Type: 
  Country: None (occurrence: None)
  Receive Date: 20111214
  Receipt Date: 20111214
  Transmission Date: 20120403
  Serious: Yes (Hospitalization)
  Sender: FDA-Public Use
  Company Number: None

PATIENT
  Sex: Male
  Weight: 67.6 kg

DRUGS (3)
  1. CARBOPLATIN [Suspect]
     Dosage: 602 MG
  2. TAXOL [Suspect]
     Dosage: 362 MG
  3. BEVACIZUMAB (RHUMAB VEGF) [Suspect]
     Dosage: 1110 MG

REACTIONS (4)
  - CENTRAL NERVOUS SYSTEM LESION [None]
  - BONE CANCER METASTATIC [None]
  - DEEP VEIN THROMBOSIS [None]
  - PULMONARY EMBOLISM [None]
